FAERS Safety Report 20628257 (Version 2)
Quarter: 2022Q2

REPORT INFORMATION
  Report Type: Report from Study
  Country: CN (occurrence: CN)
  Receive Date: 20220323
  Receipt Date: 20220415
  Transmission Date: 20220721
  Serious: Yes (Other)
  Sender: FDA-Public Use
  Company Number: CN-ASTELLAS-2022US010811

PATIENT
  Age: 6 Year
  Sex: Male
  Weight: 21 kg

DRUGS (11)
  1. TACROLIMUS [Suspect]
     Active Substance: TACROLIMUS
     Indication: Prophylaxis against transplant rejection
     Route: 065
     Dates: start: 20220201, end: 20220205
  2. TACROLIMUS [Suspect]
     Active Substance: TACROLIMUS
     Dosage: 0.8 MG, EVERY 12 HOURS
     Route: 065
     Dates: start: 20220207, end: 20220211
  3. TACROLIMUS [Suspect]
     Active Substance: TACROLIMUS
     Dosage: 0.6 MG, EVERY 12 HOURS
     Route: 065
     Dates: start: 20220211, end: 20220225
  4. TACROLIMUS [Suspect]
     Active Substance: TACROLIMUS
     Dosage: 0.8 MG, EVERY 12 HOURS
     Route: 065
     Dates: start: 20220225, end: 20220228
  5. TACROLIMUS [Suspect]
     Active Substance: TACROLIMUS
     Route: 065
     Dates: start: 20220228, end: 20220314
  6. TACROLIMUS [Suspect]
     Active Substance: TACROLIMUS
     Dosage: EVERY 12 HOURS (1.2/1,0MG)
     Route: 065
     Dates: start: 20220314, end: 20220317
  7. TACROLIMUS [Suspect]
     Active Substance: TACROLIMUS
     Dosage: 1.0 MG, EVERY 12 HOURS
     Route: 065
     Dates: start: 20220317, end: 20220318
  8. TACROLIMUS [Suspect]
     Active Substance: TACROLIMUS
     Dosage: 0.8 MG, EVERY 12 HOURS
     Route: 065
     Dates: start: 20220318, end: 20220321
  9. MEDROL [Concomitant]
     Active Substance: METHYLPREDNISOLONE
     Indication: Prophylaxis against transplant rejection
     Route: 048
  10. MYFORTIC [Concomitant]
     Active Substance: MYCOPHENOLATE SODIUM
     Indication: Prophylaxis against transplant rejection
     Route: 065
  11. SOLU-MEDROL [Concomitant]
     Active Substance: METHYLPREDNISOLONE SODIUM SUCCINATE
     Indication: Shock
     Route: 065

REACTIONS (1)
  - Liver function test abnormal [Not Recovered/Not Resolved]

NARRATIVE: CASE EVENT DATE: 20220307
